FAERS Safety Report 4425493-5 (Version None)
Quarter: 2004Q3

REPORT INFORMATION
  Report Type: 
  Country: None (occurrence: None)
  Receive Date: 20040813
  Receipt Date: 20030731
  Transmission Date: 20050211
  Serious: Yes (Other)
  Sender: FDA-Public Use
  Company Number: BR-JNJFOC-20040604003

PATIENT
  Age: 19 Year
  Sex: Female

DRUGS (7)
  1. TYLENOL [Suspect]
     Route: 049
  2. TYLENOL [Suspect]
     Indication: SUICIDE ATTEMPT
     Route: 049
  3. HALOPERIDOL [Suspect]
     Indication: SUICIDE ATTEMPT
  4. METAMIZOLE [Suspect]
     Indication: SUICIDE ATTEMPT
  5. PROMETAZINE [Suspect]
     Indication: SUICIDE ATTEMPT
  6. MIDAZOLAM [Suspect]
     Indication: SUICIDE ATTEMPT
  7. ALCOHOL [Suspect]
     Indication: SUICIDE ATTEMPT

REACTIONS (3)
  - INTENTIONAL MISUSE [None]
  - SOMNOLENCE [None]
  - SUICIDE ATTEMPT [None]
